FAERS Safety Report 6824578-3 (Version None)
Quarter: 2010Q3

REPORT INFORMATION
  Report Type: 
  Country: None (occurrence: None)
  Receive Date: 20100708
  Receipt Date: 20070126
  Transmission Date: 20110219
  Serious: No
  Sender: FDA-Public Use
  Company Number: US-PFIZER INC-2006132168

PATIENT
  Sex: Male

DRUGS (6)
  1. CHANTIX [Suspect]
     Indication: SMOKING CESSATION THERAPY
     Route: 048
     Dates: start: 20060922, end: 20060930
  2. FLONASE [Concomitant]
  3. ALBUTEROL SULFATE [Concomitant]
  4. LORAZEPAM [Concomitant]
  5. CLONAZEPAM [Concomitant]
  6. OXYCODONE HCL [Concomitant]

REACTIONS (2)
  - ABNORMAL DREAMS [None]
  - NAUSEA [None]
